FAERS Safety Report 12389280 (Version 1)
Quarter: 2016Q2

REPORT INFORMATION
  Report Type: Spontaneous
  Country: US (occurrence: KR)
  Receive Date: 20160520
  Receipt Date: 20160520
  Transmission Date: 20160815
  Serious: Yes (Other)
  Sender: FDA-Public Use
  Company Number: US-JNJCP-30000336265

PATIENT
  Sex: Female

DRUGS (1)
  1. AVEENO BABY NATURAL PROTECTION FACE SUNSCREEN BROAD SPECTRUM SPF50 [Suspect]
     Active Substance: TITANIUM DIOXIDE\ZINC OXIDE
     Indication: PRODUCT USED FOR UNKNOWN INDICATION
     Dosage: TWO TIMES IN TOTAL ON FACE
     Route: 061
     Dates: start: 20160426, end: 20160427

REACTIONS (1)
  - Application site swelling [Recovered/Resolved]

NARRATIVE: CASE EVENT DATE: 20160427
